FAERS Safety Report 10501214 (Version 1)
Quarter: 2014Q4

REPORT INFORMATION
  Report Type: Spontaneous
  Country: US (occurrence: None)
  Receive Date: 20141006
  Receipt Date: 20141006
  Transmission Date: 20150528
  Serious: Yes (Other)
  Sender: FDA-Public Use
  Company Number: None

PATIENT
  Age: 52 Year
  Sex: Female

DRUGS (1)
  1. REFRESH CELLUVISC [Suspect]
     Active Substance: CARBOXYMETHYLCELLULOSE SODIUM
     Indication: CORNEAL TRANSPLANT
     Dosage: I VIAL  AS NEEDED  INTO THE EYE
     Dates: start: 20140731, end: 20141002

REACTIONS (1)
  - Product dropper issue [None]

NARRATIVE: CASE EVENT DATE: 20141002
